FAERS Safety Report 23445535 (Version 1)
Quarter: 2024Q1

REPORT INFORMATION
  Report Type: Spontaneous
  Country: JP (occurrence: JP)
  Receive Date: 20240126
  Receipt Date: 20240126
  Transmission Date: 20240409
  Serious: Yes (Other)
  Sender: FDA-Public Use
  Company Number: JP-CHUGAI-2024001681

PATIENT

DRUGS (1)
  1. TECENTRIQ [Suspect]
     Active Substance: ATEZOLIZUMAB
     Indication: Non-small cell lung cancer
     Dosage: 1200 MILLIGRAM, ONCE/3WEEKS
     Route: 065
     Dates: end: 20230801

REACTIONS (2)
  - Adrenal insufficiency [Recovered/Resolved]
  - Alcohol poisoning [Unknown]

NARRATIVE: CASE EVENT DATE: 20231001
